FAERS Safety Report 16333477 (Version 1)
Quarter: 2019Q2

REPORT INFORMATION
  Report Type: Spontaneous
  Country: US (occurrence: US)
  Receive Date: 20190520
  Receipt Date: 20190520
  Transmission Date: 20190711
  Serious: Yes (Hospitalization)
  Sender: FDA-Public Use
  Company Number: US-JNJFOC-20190514291

PATIENT
  Sex: Male

DRUGS (2)
  1. DURAGESIC [Suspect]
     Active Substance: FENTANYL
     Indication: MENISCUS INJURY
     Dosage: 75 MCG/ EVERY 48 HOURS
     Route: 062
     Dates: start: 200612
  2. DURAGESIC [Suspect]
     Active Substance: FENTANYL
     Indication: MENISCUS INJURY
     Route: 062
     Dates: start: 1997, end: 200612

REACTIONS (11)
  - Body height decreased [Not Recovered/Not Resolved]
  - Weight decreased [Unknown]
  - Retinal disorder [Unknown]
  - Osteomyelitis [Unknown]
  - Visual impairment [Not Recovered/Not Resolved]
  - Coma [Recovered/Resolved]
  - Adverse event [Unknown]
  - Meniscus injury [Unknown]
  - Pneumonia [Unknown]
  - Cataract [Unknown]
  - Posture abnormal [Not Recovered/Not Resolved]

NARRATIVE: CASE EVENT DATE: 2003
